FAERS Safety Report 19030693 (Version 1)
Quarter: 2021Q1

REPORT INFORMATION
  Report Type: Report from Study
  Country: US (occurrence: US)
  Receive Date: 20210319
  Receipt Date: 20210319
  Transmission Date: 20210420
  Serious: Yes (Other)
  Sender: FDA-Public Use
  Company Number: US-MYLANLABS-2021M1016013

PATIENT
  Age: 59 Year
  Sex: Female

DRUGS (2)
  1. POSACONAZOLE [Concomitant]
     Active Substance: POSACONAZOLE
     Indication: ANTIFUNGAL PROPHYLAXIS
     Dosage: UNK
     Route: 065
  2. CYTARABINE. [Suspect]
     Active Substance: CYTARABINE
     Indication: ACUTE MYELOID LEUKAEMIA
     Dosage: UNK, QD }/= 1G/M 2 /DAY
     Route: 065

REACTIONS (4)
  - Systemic candida [Unknown]
  - Drug ineffective [Unknown]
  - Neutropenia [Unknown]
  - Infection [Unknown]
